FAERS Safety Report 13245337 (Version 1)
Quarter: 2017Q1

REPORT INFORMATION
  Report Type: Spontaneous
  Country: GB (occurrence: GB)
  Receive Date: 20170217
  Receipt Date: 20170217
  Transmission Date: 20170428
  Serious: Yes (Other)
  Sender: FDA-Public Use
  Company Number: GB-ASTRAZENECA-2017SE16445

PATIENT
  Age: 81 Year
  Sex: Female
  Weight: 67 kg

DRUGS (8)
  1. ADCAL [Concomitant]
     Active Substance: CALCIUM CARBONATE
     Dates: start: 20160802
  2. OMEPRAZOLE. [Concomitant]
     Active Substance: OMEPRAZOLE
     Dates: start: 20161124, end: 20161222
  3. EKLIRA GENUAIR [Suspect]
     Active Substance: ACLIDINIUM BROMIDE
     Route: 055
     Dates: start: 20160906
  4. AMLODIPINE [Concomitant]
     Active Substance: AMLODIPINE BESYLATE
     Dates: start: 20160802
  5. ALENDRONIC ACID [Concomitant]
     Active Substance: ALENDRONIC ACID
     Dates: start: 20160802
  6. NAPROXEN. [Concomitant]
     Active Substance: NAPROXEN
     Dates: start: 20161124, end: 20161201
  7. SALBUTAMOL [Concomitant]
     Active Substance: ALBUTEROL
     Dosage: 2.0DF UNKNOWN
     Route: 055
     Dates: start: 20161015
  8. SYMBICORT [Concomitant]
     Active Substance: BUDESONIDE\FORMOTEROL FUMARATE DIHYDRATE
     Dosage: AS DIRECTED.
     Dates: start: 20161220, end: 20170117

REACTIONS (2)
  - Oedema peripheral [Recovered/Resolved]
  - Eye swelling [Unknown]

NARRATIVE: CASE EVENT DATE: 20160906
